FAERS Safety Report 5472813-9 (Version None)
Quarter: 2007Q4

REPORT INFORMATION
  Report Type: 
  Country: None (occurrence: None)
  Receive Date: 20071001
  Receipt Date: 20070216
  Transmission Date: 20080405
  Serious: Yes (Other)
  Sender: FDA-Public Use
  Company Number: US-ASTRAZENECA-2006UW26802

PATIENT
  Age: 23291 Day
  Sex: Female
  Weight: 86.2 kg

DRUGS (12)
  1. ARIMIDEX [Suspect]
     Indication: BREAST CANCER FEMALE
     Route: 048
     Dates: start: 20061203
  2. ADVAIR DISKUS 100/50 [Concomitant]
     Indication: ASTHMA
     Route: 055
  3. LIPITOR [Concomitant]
     Indication: BLOOD CHOLESTEROL INCREASED
     Route: 048
  4. VERAPAMIL [Concomitant]
     Indication: HYPERTENSION
     Route: 048
  5. ZYRTEC [Concomitant]
  6. SINGULAIR [Concomitant]
     Indication: HYPERSENSITIVITY
     Route: 048
  7. SINGULAIR [Concomitant]
     Indication: ASTHMA
     Route: 048
  8. CELEXA [Concomitant]
     Indication: DEPRESSION
     Route: 048
  9. ALBUTEROL [Concomitant]
     Indication: ASTHMA
     Route: 055
  10. GNC MULTI SOLOTRON PLATINUM [Concomitant]
     Dates: start: 20061101
  11. LORATADINE [Concomitant]
     Indication: ASTHMA
     Route: 048
  12. LORATADINE [Concomitant]
     Indication: HYPERSENSITIVITY
     Route: 048

REACTIONS (2)
  - ALOPECIA [None]
  - BLOOD PRESSURE INCREASED [None]
